FAERS Safety Report 19185478 (Version 2)
Quarter: 2022Q3

REPORT INFORMATION
  Report Type: Spontaneous
  Country: US (occurrence: US)
  Receive Date: 20210427
  Receipt Date: 20220810
  Transmission Date: 20221027
  Serious: Yes (Hospitalization)
  Sender: FDA-Public Use
  Company Number: US-PFIZER INC-2021417801

PATIENT
  Age: 62 Year
  Sex: Female

DRUGS (1)
  1. IBRANCE [Suspect]
     Active Substance: PALBOCICLIB
     Indication: Breast neoplasm
     Dosage: 100 MG, CYCLIC (1DAILY FOR 21 DAYS)
     Route: 048

REACTIONS (2)
  - Infection [Unknown]
  - Alopecia [Unknown]
